FAERS Safety Report 17470979 (Version 1)
Quarter: 2020Q1

REPORT INFORMATION
  Report Type: Spontaneous
  Country: FR (occurrence: FR)
  Receive Date: 20200227
  Receipt Date: 20200227
  Transmission Date: 20200409
  Serious: Yes (Hospitalization)
  Sender: FDA-Public Use
  Company Number: FR-TEVA-2020-FR-1191860

PATIENT
  Age: 82 Year
  Sex: Female

DRUGS (2)
  1. FUROSEMIDE. [Interacting]
     Active Substance: FUROSEMIDE
     Indication: CHRONIC KIDNEY DISEASE
     Dosage: 80 MG
     Route: 048
     Dates: end: 20200210
  2. LOSARTAN POTASSIQUE [Suspect]
     Active Substance: LOSARTAN POTASSIUM
     Indication: HYPERTENSION
     Dosage: 50 MG
     Route: 048
     Dates: end: 20200210

REACTIONS (3)
  - Acute kidney injury [Recovering/Resolving]
  - Orthostatic hypotension [Recovering/Resolving]
  - Drug interaction [Unknown]

NARRATIVE: CASE EVENT DATE: 20200114
